FAERS Safety Report 9142647 (Version 1)
Quarter: 2013Q1

REPORT INFORMATION
  Report Type: Spontaneous
  Country: BR (occurrence: BR)
  Receive Date: 20130306
  Receipt Date: 20130306
  Transmission Date: 20140127
  Serious: Yes (Other)
  Sender: FDA-Public Use
  Company Number: PHHY2013BR021738

PATIENT
  Sex: Female

DRUGS (4)
  1. DIOVAN HCT [Suspect]
     Indication: HYPERTENSION
     Dosage: 1 DF, QD, (IN A DAY IN THE MORNING)
     Dates: start: 200912
  2. DIOVAN HCT [Suspect]
     Dosage: 0.5 DF, QD, (IN A DAY IN THE MORNING)
  3. ATENOLOL [Suspect]
     Indication: ARRHYTHMIA
     Dosage: 1 DF, QD (IN THE MORNING)
     Dates: start: 2012
  4. SIMVASTATIN [Concomitant]

REACTIONS (7)
  - Arrhythmia [Recovering/Resolving]
  - Palpitations [Recovering/Resolving]
  - Heart rate decreased [Recovering/Resolving]
  - Muscular weakness [Recovering/Resolving]
  - Feeling abnormal [Recovering/Resolving]
  - Asthenia [Recovering/Resolving]
  - Wrong technique in drug usage process [Unknown]
